FAERS Safety Report 4364777-6 (Version None)
Quarter: 2004Q2

REPORT INFORMATION
  Report Type: 
  Country: None (occurrence: None)
  Receive Date: 20040514
  Receipt Date: 20040107
  Transmission Date: 20050107
  Serious: Yes (Other)
  Sender: FDA-Public Use
  Company Number: WAES 0401USA00546

PATIENT
  Age: 39 Year
  Sex: Female

DRUGS (3)
  1. CRIXIVAN [Suspect]
     Indication: HIV INFECTION
     Dosage: PO; 600 MG/DAILY/PO
     Route: 048
     Dates: end: 20031201
  2. VIDEX [Suspect]
     Indication: HIV INFECTION
     Dosage: 250 MG/DAILY/PO; 600 MG/DAILY/PO
     Route: 048
     Dates: start: 20031001
  3. VIDEX [Suspect]
     Indication: HIV INFECTION
     Dosage: 250 MG/DAILY/PO; 600 MG/DAILY/PO
     Route: 048
     Dates: start: 20031201

REACTIONS (3)
  - FLANK PAIN [None]
  - HAEMATURIA [None]
  - NEPHROLITHIASIS [None]
